FAERS Safety Report 12721288 (Version 2)
Quarter: 2017Q4

REPORT INFORMATION
  Report Type: Spontaneous
  Country: US (occurrence: US)
  Receive Date: 20160907
  Receipt Date: 20171016
  Transmission Date: 20180320
  Serious: Yes (Death, Other)
  Sender: FDA-Public Use
  Company Number: US-JNJFOC-20160905591

PATIENT
  Sex: Female

DRUGS (4)
  1. CYCLOPHOSPHAMIDE. [Suspect]
     Active Substance: CYCLOPHOSPHAMIDE
     Indication: BREAST CANCER
     Route: 042
  2. DOXORUBICIN HYDROCHLORIDE. [Suspect]
     Active Substance: DOXORUBICIN HYDROCHLORIDE
     Indication: BREAST CANCER
     Route: 042
  3. DOCETAXEL. [Suspect]
     Active Substance: DOCETAXEL
     Indication: BREAST CANCER
     Route: 042
  4. PEGFILGRASTIM [Concomitant]
     Active Substance: PEGFILGRASTIM
     Route: 058

REACTIONS (28)
  - Bone pain [Unknown]
  - Anaemia [Unknown]
  - Abdominal pain [Unknown]
  - Decreased appetite [Unknown]
  - Neutropenic sepsis [Unknown]
  - Thrombocytopenia [Unknown]
  - Vomiting [Unknown]
  - Pyrexia [Unknown]
  - Cough [Unknown]
  - Alopecia [Unknown]
  - Nausea [Unknown]
  - Oedema peripheral [Unknown]
  - Injection site reaction [Unknown]
  - Pain in extremity [Unknown]
  - Constipation [Unknown]
  - Neutropenia [Unknown]
  - Diarrhoea [Unknown]
  - Myalgia [Unknown]
  - Stomatitis [Unknown]
  - Death [Fatal]
  - Febrile neutropenia [Unknown]
  - Arthralgia [Unknown]
  - Erythema [Unknown]
  - Leukopenia [Unknown]
  - Asthenia [Unknown]
  - Fatigue [Unknown]
  - Headache [Unknown]
  - Pain [Unknown]
